FAERS Safety Report 10203170 (Version 3)
Quarter: 2014Q4

REPORT INFORMATION
  Report Type: Report from Study
  Country: US (occurrence: US)
  Receive Date: 20140529
  Receipt Date: 20141010
  Transmission Date: 20150528
  Serious: Yes (Hospitalization)
  Sender: FDA-Public Use
  Company Number: US-BIOGENIDEC-2014BI049958

PATIENT
  Age: 49 Year
  Sex: Female

DRUGS (1)
  1. AVONEX [Suspect]
     Active Substance: INTERFERON BETA-1A
     Indication: MULTIPLE SCLEROSIS
     Route: 030
     Dates: start: 20091024

REACTIONS (12)
  - Vomiting [Recovered/Resolved]
  - Blood test abnormal [Recovered/Resolved]
  - Asthenia [Not Recovered/Not Resolved]
  - Constipation [Recovered/Resolved]
  - Surgery [Recovered/Resolved]
  - Abdominal hernia [Recovered/Resolved]
  - Diarrhoea [Recovered/Resolved]
  - Memory impairment [Not Recovered/Not Resolved]
  - Adverse event [Recovered/Resolved with Sequelae]
  - Headache [Recovered/Resolved]
  - Dyspepsia [Recovered/Resolved]
  - Pain [Recovered/Resolved]

NARRATIVE: CASE EVENT DATE: 20091024
